FAERS Safety Report 10098544 (Version 2)
Quarter: 2014Q4

REPORT INFORMATION
  Report Type: Spontaneous
  Country: US (occurrence: US)
  Receive Date: 20140423
  Receipt Date: 20141215
  Transmission Date: 20150528
  Serious: Yes (Hospitalization, Other)
  Sender: FDA-Public Use
  Company Number: US-BAYER-2014-057867

PATIENT
  Age: 23 Year
  Sex: Female
  Weight: 107.48 kg

DRUGS (2)
  1. OCELLA [Suspect]
     Active Substance: DROSPIRENONE\ETHINYL ESTRADIOL
     Indication: PREMENSTRUAL SYNDROME
     Dosage: UNK
     Route: 048
     Dates: start: 2005
  2. OCELLA [Suspect]
     Active Substance: DROSPIRENONE\ETHINYL ESTRADIOL
     Indication: MENSTRUAL CYCLE MANAGEMENT

REACTIONS (7)
  - Pulmonary embolism [None]
  - Deep vein thrombosis [None]
  - Pain [None]
  - Thrombosis [None]
  - Cerebrovascular accident [None]
  - Pneumonia [None]
  - Injury [None]

NARRATIVE: CASE EVENT DATE: 2006
